FAERS Safety Report 9106296 (Version 1)
Quarter: 2013Q1

REPORT INFORMATION
  Report Type: Spontaneous
  Country: US (occurrence: US)
  Receive Date: 20130220
  Receipt Date: 20130220
  Transmission Date: 20140127
  Serious: Yes (Other)
  Sender: FDA-Public Use
  Company Number: US-PFIZER INC-2013063790

PATIENT
  Age: 61 Year
  Sex: Male
  Weight: 104 kg

DRUGS (2)
  1. PRISTIQ [Suspect]
     Indication: DEPRESSION
     Dosage: 50 MG, DAILY
     Dates: start: 20130122
  2. CLONAZEPAM [Concomitant]
     Indication: ANXIETY
     Dosage: 0.5 MG, 2X/DAY

REACTIONS (1)
  - Weight increased [Not Recovered/Not Resolved]
